FAERS Safety Report 8398249-9 (Version None)
Quarter: 2012Q2

REPORT INFORMATION
  Report Type: 
  Country: None (occurrence: None)
  Receive Date: 20120524
  Receipt Date: 20120513
  Transmission Date: 20120825
  Serious: Yes (Other)
  Sender: FDA-Public Use
  Company Number: AUR-APL-2012-02296

PATIENT
  Age: 59 Year
  Sex: Male

DRUGS (4)
  1. SIMVASTATIN [Suspect]
     Indication: PRODUCT USED FOR UNKNOWN INDICATION
     Dosage: 40 MG
  2. RAMIPRIL [Concomitant]
  3. BISOPROLOL FUMARATE [Concomitant]
  4. ASPIRIN [Concomitant]

REACTIONS (13)
  - DISEASE RECURRENCE [None]
  - BLOOD PRESSURE DIFFERENCE OF EXTREMITIES [None]
  - SUBCLAVIAN ARTERY OCCLUSION [None]
  - VASCULAR GRAFT COMPLICATION [None]
  - LOW DENSITY LIPOPROTEIN INCREASED [None]
  - ELECTROCARDIOGRAM ST-T SEGMENT DEPRESSION [None]
  - ANGINA UNSTABLE [None]
  - DRUG INEFFECTIVE [None]
  - CORONARY ARTERY OCCLUSION [None]
  - PALPITATIONS [None]
  - ATRIAL FLUTTER [None]
  - VASCULAR GRAFT OCCLUSION [None]
  - CORONARY ARTERY STENOSIS [None]
